FAERS Safety Report 8231205-X (Version None)
Quarter: 2012Q1

REPORT INFORMATION
  Report Type: 
  Country: None (occurrence: None)
  Receive Date: 20120323
  Receipt Date: 20120323
  Transmission Date: 20120608
  Serious: Yes (Hospitalization)
  Sender: FDA-Public Use
  Company Number: None

PATIENT
  Age: 27 Year
  Sex: Female
  Weight: 111 kg

DRUGS (2)
  1. MYCOPHENOLATE MOFETIL [Concomitant]
     Dosage: 500MG
     Route: 042
     Dates: start: 20120128, end: 20120201
  2. MYCOPHENOLATE MOFETIL [Suspect]
     Dosage: 500MG
     Route: 048
     Dates: start: 20120107, end: 20120128

REACTIONS (2)
  - LEUKOPENIA [None]
  - THROMBOCYTOPENIA [None]
